FAERS Safety Report 7301269-6 (Version None)
Quarter: 2011Q1

REPORT INFORMATION
  Report Type: 
  Country: None (occurrence: None)
  Receive Date: 20110112
  Receipt Date: 20090724
  Transmission Date: 20110831
  Serious: Yes (Other)
  Sender: FDA-Public Use
  Company Number: THYM-1001127

PATIENT

DRUGS (6)
  1. THYMOGLOBULIN [Suspect]
     Indication: PROPHYLAXIS AGAINST TRANSPLANT REJECTION
     Dosage: 1.5 MG/KG, QD, INTRAVENOUS
     Route: 042
  2. METHYLPREDNISOLONE [Concomitant]
  3. CYTOGAM [Concomitant]
  4. MYCOPHENOLATE MOFETIL [Concomitant]
  5. TACROLIMUS [Concomitant]
  6. VALGANCICLOVIR HCL [Concomitant]

REACTIONS (1)
  - CYTOMEGALOVIRUS INFECTION [None]
